FAERS Safety Report 18144632 (Version 2)
Quarter: 2025Q3

REPORT INFORMATION
  Report Type: Spontaneous
  Country: EU (occurrence: EU)
  Receive Date: 20200813
  Receipt Date: 20250706
  Transmission Date: 20251021
  Serious: Yes (Hospitalization)
  Sender: AUROBINDO
  Company Number: EU-AMGEN-IRLSP2020122422

PATIENT
  Age: 72 Year
  Sex: Male

DRUGS (3)
  1. CINACALCET [Suspect]
     Active Substance: CINACALCET
     Indication: Hypercalcaemia
     Route: 065
  2. PREDNISOLONE [Concomitant]
     Active Substance: PREDNISOLONE
     Indication: Product used for unknown indication
     Route: 065
  3. CHOLECALCIFEROL [Concomitant]
     Active Substance: CHOLECALCIFEROL
     Indication: Product used for unknown indication
     Dosage: 800 MILLIGRAM, ONCE A DAY
     Route: 065

REACTIONS (4)
  - Hypercalcaemia [Unknown]
  - Alcoholic liver disease [Unknown]
  - Off label use [Unknown]
  - Drug ineffective for unapproved indication [Unknown]
